FAERS Safety Report 5246428-1 (Version None)
Quarter: 2007Q1

REPORT INFORMATION
  Report Type: 
  Country: None (occurrence: None)
  Receive Date: 20070226
  Receipt Date: 20070215
  Transmission Date: 20070707
  Serious: Yes (Disabling, Other)
  Sender: FDA-Public Use
  Company Number: HQWYE162204DEC06

PATIENT
  Sex: Female
  Weight: 44 kg

DRUGS (2)
  1. TRIDIOL-28 [Suspect]
     Indication: CONTRACEPTION
     Route: 048
     Dates: start: 20060323, end: 20060601
  2. IBUPROFEN [Concomitant]
     Dosage: UNKNOWN
     Route: 048

REACTIONS (3)
  - OPTIC NEURITIS [None]
  - PAPILLOEDEMA [None]
  - VISUAL FIELD DEFECT [None]
